FAERS Safety Report 18089787 (Version 1)
Quarter: 2020Q3

REPORT INFORMATION
  Report Type: Spontaneous
  Country: US (occurrence: US)
  Receive Date: 20200730
  Receipt Date: 20200730
  Transmission Date: 20201103
  Serious: Yes (Death, Life-Threatening, Hospitalization, Other)
  Sender: FDA-Public Use
  Company Number: US-AUROBINDO-AUR-APL-2020-036660

PATIENT
  Age: 67 Year
  Sex: Male

DRUGS (4)
  1. METRONIDAZOLE. [Suspect]
     Active Substance: METRONIDAZOLE
     Indication: ENTERITIS
     Dosage: UNK,UNCERTAIN DOSAGE
     Route: 065
  2. METRONIDAZOLE. [Suspect]
     Active Substance: METRONIDAZOLE
     Indication: PNEUMONIA ASPIRATION
     Dosage: 500 MILLIGRAM, FOUR TIMES/DAY
     Route: 065
  3. AMOXICILLIN. [Concomitant]
     Active Substance: AMOXICILLIN
     Indication: PNEUMONIA ASPIRATION
     Dosage: UNK
     Route: 065
  4. AMOXICILLIN. [Concomitant]
     Active Substance: AMOXICILLIN
     Indication: ENTERITIS

REACTIONS (6)
  - Toxicity to various agents [Fatal]
  - Respiratory disorder [Unknown]
  - Neurological decompensation [Unknown]
  - Toxic encephalopathy [Fatal]
  - Wernicke^s encephalopathy [Fatal]
  - Prescription drug used without a prescription [Unknown]
